FAERS Safety Report 8816044 (Version 2)
Quarter: 2012Q4

REPORT INFORMATION
  Report Type: 
  Country: US (occurrence: US)
  Receive Date: 20120928
  Receipt Date: 20121123
  Transmission Date: 20130627
  Serious: Yes (Other)
  Sender: FDA-Public Use
  Company Number: US-PFIZER INC-2012239105

PATIENT
  Age: 45 Year
  Sex: Female

DRUGS (5)
  1. ZOLOFT [Suspect]
     Indication: DEPRESSION
     Dosage: 50 mg, 1x/day
     Route: 048
     Dates: start: 201208
  2. ACCUPRIL [Suspect]
     Indication: BLOOD PRESSURE HIGH
     Dosage: 5 mg, 1x/day
     Route: 048
     Dates: start: 201106
  3. ACTOS [Concomitant]
     Indication: DIABETES
     Dosage: 15 mg, Daily
     Dates: start: 201106, end: 201211
  4. METFORMIN [Concomitant]
     Indication: DIABETES
     Dosage: 1000 mg, 2x/day
     Dates: start: 201203
  5. FIORICET [Concomitant]
     Indication: HEADACHE
     Dosage: 1-2 tabs TID PRN
     Dates: start: 201207

REACTIONS (3)
  - Balance disorder [Unknown]
  - Dizziness [Unknown]
  - Fall [Unknown]
